FAERS Safety Report 5568799-9 (Version None)
Quarter: 2007Q4

REPORT INFORMATION
  Report Type: 
  Country: None (occurrence: None)
  Receive Date: 20071220
  Receipt Date: 20070115
  Transmission Date: 20080405
  Serious: No
  Sender: FDA-Public Use
  Company Number: A0635666A

PATIENT
  Age: 70 Year
  Sex: Male

DRUGS (7)
  1. AVODART [Suspect]
     Indication: BENIGN PROSTATIC HYPERPLASIA
     Dosage: .5MG PER DAY
     Route: 048
     Dates: start: 20070108
  2. NOVO-ATENOL [Concomitant]
  3. NORVASC [Concomitant]
  4. METFORMIN HCL [Concomitant]
  5. ADVAIR DISKUS 100/50 [Concomitant]
  6. ALTACE [Concomitant]
  7. COUMADIN [Concomitant]

REACTIONS (1)
  - BACK PAIN [None]
